FAERS Safety Report 15320405 (Version 1)
Quarter: 2018Q3

REPORT INFORMATION
  Report Type: Spontaneous
  Country: US (occurrence: US)
  Receive Date: 20180821
  Receipt Date: 20180821
  Transmission Date: 20181010
  Serious: Yes (Other)
  Sender: FDA-Public Use
  Company Number: None

PATIENT
  Age: 50 Year
  Sex: Female
  Weight: 49.5 kg

DRUGS (11)
  1. MAGNESIUM OXIDE. [Concomitant]
     Active Substance: MAGNESIUM OXIDE
  2. PROBIOTICS [Concomitant]
     Active Substance: PROBIOTICS NOS
  3. AZO BLADDER CONTROL [Concomitant]
  4. NUPLAZID [Suspect]
     Active Substance: PIMAVANSERIN TARTRATE
     Indication: PSYCHOTIC DISORDER
     Dosage: QUANTITY:1 TABLET(S); AT BEDTIME?
     Route: 048
     Dates: start: 20180709, end: 20180820
  5. CARBIDOPA/LEVODOPA [Concomitant]
     Active Substance: CARBIDOPA\LEVODOPA
  6. LINZESS [Concomitant]
     Active Substance: LINACLOTIDE
  7. NORTHERA [Concomitant]
     Active Substance: DROXIDOPA
  8. CAFFEINE. [Concomitant]
     Active Substance: CAFFEINE
  9. TRAZODONE [Concomitant]
     Active Substance: TRAZODONE HYDROCHLORIDE
  10. SALT STICK CAPS [Concomitant]
  11. CRANBERRY EXTRACT [Concomitant]
     Active Substance: CRANBERRY JUICE

REACTIONS (4)
  - Decreased activity [None]
  - Unresponsive to stimuli [None]
  - Gait inability [None]
  - Asthenia [None]

NARRATIVE: CASE EVENT DATE: 20180820
